FAERS Safety Report 21064183 (Version 2)
Quarter: 2022Q3

REPORT INFORMATION
  Report Type: Spontaneous
  Country: PK (occurrence: None)
  Receive Date: 20220711
  Receipt Date: 20220803
  Transmission Date: 20221027
  Serious: Yes (Other)
  Sender: FDA-Public Use
  Company Number: PK-ROCHE-3133681

PATIENT
  Age: 23 Year
  Sex: Female

DRUGS (2)
  1. RITUXIMAB [Suspect]
     Active Substance: RITUXIMAB
     Indication: Rheumatoid arthritis
     Dosage: THE TOTAL INFUSION INFUSED, WAS AROUND 250 ML.
     Route: 065
     Dates: start: 20220704
  2. RITUXIMAB [Suspect]
     Active Substance: RITUXIMAB
     Route: 065

REACTIONS (13)
  - Dengue fever [Unknown]
  - Loss of consciousness [Unknown]
  - Swelling face [Unknown]
  - Rash [Unknown]
  - Pruritus [Unknown]
  - Paraesthesia [Unknown]
  - Anxiety [Unknown]
  - Hypoaesthesia [Unknown]
  - Erythema [Unknown]
  - Chest pain [Unknown]
  - Hypotension [Unknown]
  - Nausea [Unknown]
  - Vomiting [Unknown]
